FAERS Safety Report 18439660 (Version 4)
Quarter: 2020Q4

REPORT INFORMATION
  Report Type: Spontaneous
  Country: JP (occurrence: JP)
  Receive Date: 20201029
  Receipt Date: 20201120
  Transmission Date: 20210114
  Serious: Yes (Other)
  Sender: FDA-Public Use
  Company Number: NVSJ2020JP008960

PATIENT
  Age: 82 Year
  Sex: Male
  Weight: 51.5 kg

DRUGS (2)
  1. BEOVU [Suspect]
     Active Substance: BROLUCIZUMAB-DBLL
     Dosage: 6 MG
     Route: 031
     Dates: start: 20200902, end: 20200902
  2. BEOVU [Suspect]
     Active Substance: BROLUCIZUMAB-DBLL
     Indication: AGE-RELATED MACULAR DEGENERATION
     Dosage: 6 MG
     Route: 031
     Dates: start: 20200604, end: 20200604

REACTIONS (6)
  - Posterior capsule opacification [Recovered/Resolved]
  - Visual acuity reduced transiently [Recovered/Resolved]
  - Vitreous opacities [Recovered/Resolved]
  - Uveitis [Recovered/Resolved]
  - Vitreous floaters [Unknown]
  - Vision blurred [Unknown]

NARRATIVE: CASE EVENT DATE: 20200903
